FAERS Safety Report 12098066 (Version 1)
Quarter: 2016Q1

REPORT INFORMATION
  Report Type: Spontaneous
  Country: US (occurrence: US)
  Receive Date: 20160221
  Receipt Date: 20160221
  Transmission Date: 20160526
  Serious: Yes (Hospitalization)
  Sender: FDA-Public Use
  Company Number: US-ROXANE LABORATORIES, INC.-2016-RO-00317RO

PATIENT
  Age: 38 Year
  Sex: Male

DRUGS (3)
  1. TOPIRAMATE. [Suspect]
     Active Substance: TOPIRAMATE
     Indication: GENERALISED TONIC-CLONIC SEIZURE
     Route: 065
  2. LEVETIRACETAM TABLETS [Suspect]
     Active Substance: LEVETIRACETAM
     Indication: GENERALISED TONIC-CLONIC SEIZURE
     Dosage: 3000 MG
     Route: 065
  3. OXCARBAZEPINE. [Concomitant]
     Active Substance: OXCARBAZEPINE
     Indication: GENERALISED TONIC-CLONIC SEIZURE
     Route: 065

REACTIONS (1)
  - Autonomic nervous system imbalance [Recovered/Resolved]
